FAERS Safety Report 9478393 (Version 3)
Quarter: 2014Q1

REPORT INFORMATION
  Report Type: Spontaneous
  Country: JP (occurrence: JP)
  Receive Date: 20130827
  Receipt Date: 20140107
  Transmission Date: 20141002
  Serious: Yes (Death)
  Sender: FDA-Public Use
  Company Number: JP-JNJFOC-20130813049

PATIENT
  Age: 68 Year
  Sex: Male
  Weight: 42 kg

DRUGS (17)
  1. REMICADE [Suspect]
     Indication: COLITIS ULCERATIVE
     Dosage: FIRST DOSE
     Route: 042
     Dates: start: 20130408
  2. REMICADE [Suspect]
     Indication: COLITIS ULCERATIVE
     Dosage: THIRD DOSE
     Route: 042
     Dates: start: 20130419
  3. REMICADE [Suspect]
     Indication: COLITIS ULCERATIVE
     Route: 042
     Dates: start: 20130517
  4. IMURAN [Suspect]
     Indication: PRODUCT USED FOR UNKNOWN INDICATION
     Route: 048
     Dates: start: 20130408, end: 20130419
  5. PROGRAF [Suspect]
     Indication: COLITIS ULCERATIVE
     Dosage: LATE-MAY-2013
     Route: 048
     Dates: start: 20130603
  6. PREDONINE [Suspect]
     Indication: COLITIS ULCERATIVE
     Route: 048
     Dates: start: 20130329
  7. PREDONINE [Suspect]
     Indication: COLITIS ULCERATIVE
     Route: 048
     Dates: start: 20130531
  8. DEQUALINIUM CHLORIDE [Concomitant]
     Indication: PHARYNGITIS
     Route: 048
     Dates: start: 20130505
  9. MYSLEE [Concomitant]
     Indication: INSOMNIA
     Route: 048
     Dates: start: 20130408
  10. UBIDECARENONE [Concomitant]
     Route: 048
     Dates: start: 20091222
  11. RIBOFLAVIN [Concomitant]
     Route: 048
     Dates: start: 20091222
  12. GANCICLOVIR [Concomitant]
     Route: 048
     Dates: start: 20130301
  13. OMEPRAL [Concomitant]
     Indication: GASTRIC ULCER
     Route: 048
     Dates: start: 20130305
  14. ASACOL [Concomitant]
     Indication: COLITIS ULCERATIVE
     Route: 048
     Dates: start: 20130319
  15. CELECOX [Concomitant]
     Indication: COLITIS ULCERATIVE
     Route: 048
     Dates: start: 20130424
  16. LOPEMIN [Concomitant]
     Indication: DIARRHOEA
     Route: 048
     Dates: start: 20130507
  17. BROTIZOLAM [Concomitant]
     Indication: INSOMNIA
     Route: 048
     Dates: start: 20130512

REACTIONS (2)
  - Disseminated tuberculosis [Fatal]
  - Pleural effusion [Unknown]
